FAERS Safety Report 6176369-7 (Version None)
Quarter: 2009Q2

REPORT INFORMATION
  Report Type: 
  Country: None (occurrence: None)
  Receive Date: 20090501
  Receipt Date: 20090423
  Transmission Date: 20091009
  Serious: Yes (Hospitalization)
  Sender: FDA-Public Use
  Company Number: GB-TEVA-192826ISR

PATIENT
  Age: 33 Year
  Sex: Female
  Weight: 70 kg

DRUGS (1)
  1. TRAMADOL HCL [Suspect]
     Route: 042
     Dates: start: 20090324, end: 20090324

REACTIONS (1)
  - OCULOGYRIC CRISIS [None]
